FAERS Safety Report 22117040 (Version 1)
Quarter: 2023Q1

REPORT INFORMATION
  Report Type: Spontaneous
  Country: US (occurrence: US)
  Receive Date: 20230320
  Receipt Date: 20230320
  Transmission Date: 20230417
  Serious: Yes (Hospitalization)
  Sender: FDA-Public Use
  Company Number: US-BIOVITRUM-2023-US-007026

PATIENT
  Sex: Male
  Weight: 9 kg

DRUGS (4)
  1. SYNAGIS [Suspect]
     Active Substance: PALIVIZUMAB
     Indication: Foetal malpresentation
     Dosage: ONCE A MONTH
     Route: 030
  2. SYNAGIS [Suspect]
     Active Substance: PALIVIZUMAB
     Indication: Obstructed labour
  3. SYNAGIS [Suspect]
     Active Substance: PALIVIZUMAB
     Indication: Cephalo-pelvic disproportion
  4. FLUOCINOLONE ACETONIDE [Concomitant]
     Active Substance: FLUOCINOLONE ACETONIDE
     Indication: Product used for unknown indication

REACTIONS (3)
  - Illness [Unknown]
  - Product dose omission issue [Unknown]
  - Intentional product misuse [Unknown]
